FAERS Safety Report 11467574 (Version 1)
Quarter: 2015Q3

REPORT INFORMATION
  Report Type: Spontaneous
  Country: US (occurrence: None)
  Receive Date: 20150904
  Receipt Date: 20150904
  Transmission Date: 20151125
  Serious: Yes (Hospitalization)
  Sender: FDA-Public Use
  Company Number: None

PATIENT
  Age: 37 Year
  Sex: Female
  Weight: 65.2 kg

DRUGS (2)
  1. CARBOPLATIN. [Suspect]
     Active Substance: CARBOPLATIN
     Dates: end: 20150722
  2. TAXOL [Suspect]
     Active Substance: PACLITAXEL
     Dates: end: 20150722

REACTIONS (11)
  - Nausea [None]
  - Abdominal pain [None]
  - Hypokalaemia [None]
  - Weight decreased [None]
  - Anaemia [None]
  - Constipation [None]
  - Vomiting [None]
  - Blood creatinine increased [None]
  - Pelvic pain [None]
  - Dehydration [None]
  - Small intestinal obstruction [None]

NARRATIVE: CASE EVENT DATE: 20150831
